FAERS Safety Report 21236614 (Version 1)
Quarter: 2022Q3

REPORT INFORMATION
  Report Type: Spontaneous
  Country: US (occurrence: US)
  Receive Date: 20220822
  Receipt Date: 20220822
  Transmission Date: 20221027
  Serious: Yes (Other)
  Sender: FDA-Public Use
  Company Number: US-SA-SAC20220816002014

PATIENT
  Age: 48 Year
  Sex: Male

DRUGS (2)
  1. ZANTAC [Suspect]
     Active Substance: RANITIDINE HYDROCHLORIDE
     Indication: Dyspepsia
     Dosage: 25 MG, PRN(FREQ:OCCASIONAL)
     Dates: start: 200910
  2. ZANTAC [Suspect]
     Active Substance: RANITIDINE HYDROCHLORIDE
     Dosage: 75 MG, PRN(FREQ:OCCASIONAL)
     Dates: end: 201803

REACTIONS (1)
  - Renal cancer stage IV [Unknown]

NARRATIVE: CASE EVENT DATE: 20150101
